FAERS Safety Report 4679578-9 (Version None)
Quarter: 2005Q3

REPORT INFORMATION
  Report Type: 
  Country: None (occurrence: None)
  Receive Date: 20050531
  Receipt Date: 20050517
  Transmission Date: 20060218
  Serious: No
  Sender: FDA-Public Use
  Company Number: 805#1#2005-00045

PATIENT
  Age: 2 Day
  Sex: Female

DRUGS (10)
  1. ALPROSTADIL [Suspect]
     Indication: HEART DISEASE CONGENITAL
     Dosage: SEE IMAGE
     Route: 041
     Dates: start: 20050203, end: 20050203
  2. ALPROSTADIL [Suspect]
     Indication: HEART DISEASE CONGENITAL
     Dosage: SEE IMAGE
     Route: 041
     Dates: start: 20050203, end: 20050204
  3. ALPROSTADIL [Suspect]
     Indication: HEART DISEASE CONGENITAL
     Dosage: SEE IMAGE
     Route: 041
     Dates: start: 20050204, end: 20050204
  4. ALPROSTADIL [Suspect]
     Indication: HEART DISEASE CONGENITAL
     Dosage: SEE IMAGE
     Route: 041
     Dates: start: 20050204, end: 20050210
  5. VECURONIUM BROMIDE [Concomitant]
  6. MIDAZOLAM [Concomitant]
  7. HUMAN-SERUM-ALBUMIN (ALBUMIN NORMAL HUMAN SERUM) [Concomitant]
  8. SULBACTAM-SODIUM/AMPICILLIN-SODIUM (AMPICILLIN SODIUM, SULBACTAM SODIU [Concomitant]
  9. POTASSIUM CHLORIDE [Concomitant]
  10. CALCIUM GLUCONATE [Concomitant]

REACTIONS (2)
  - GENERAL PHYSICAL CONDITION ABNORMAL [None]
  - NEONATAL APNOEIC ATTACK [None]
